FAERS Safety Report 7330778-9 (Version None)
Quarter: 2011Q1

REPORT INFORMATION
  Report Type: 
  Country: None (occurrence: None)
  Receive Date: 20110225
  Receipt Date: 20110225
  Transmission Date: 20110831
  Serious: Yes (Hospitalization)
  Sender: FDA-Public Use
  Company Number: None

PATIENT
  Sex: Male
  Weight: 95.5 kg

DRUGS (2)
  1. BEXXAR [Suspect]
     Indication: DIFFUSE LARGE B-CELL LYMPHOMA
     Dosage: 25 CGY
     Dates: start: 20110120
  2. BEXXAR [Suspect]
     Indication: DIFFUSE LARGE B-CELL LYMPHOMA
     Dosage: 450 MG IV
     Route: 042
     Dates: start: 20110113, end: 20110120

REACTIONS (2)
  - PERICARDITIS [None]
  - HYPOTENSION [None]
